FAERS Safety Report 4738276-3 (Version None)
Quarter: 2005Q3

REPORT INFORMATION
  Report Type: 
  Country: None (occurrence: None)
  Receive Date: 20050808
  Receipt Date: 20050808
  Transmission Date: 20060218
  Serious: Yes (Death)
  Sender: FDA-Public Use
  Company Number: None

PATIENT
  Age: 77 Year
  Sex: Female

DRUGS (1)
  1. FENTANYL [Suspect]
     Dosage: FILM, EXTENDED RELASE TRANSDERMAL
     Route: 062

REACTIONS (1)
  - MEDICATION ERROR [None]
